FAERS Safety Report 8912205 (Version 1)
Quarter: 2012Q4

REPORT INFORMATION
  Report Type: 
  Country: MX (occurrence: MX)
  Receive Date: 20121116
  Receipt Date: 20121116
  Transmission Date: 20130627
  Serious: Yes (Other)
  Sender: FDA-Public Use
  Company Number: MX-SANOFI-AVENTIS-2012SA082475

PATIENT
  Age: 76 Year
  Sex: Male
  Weight: 87 kg

DRUGS (2)
  1. PLAVIX [Suspect]
     Indication: THROMBOSIS PROPHYLAXIS
     Route: 048
     Dates: start: 2009
  2. ENALAPRIL [Concomitant]
     Indication: HYPERTENSION ARTERIAL
     Route: 048
     Dates: start: 1990

REACTIONS (1)
  - Amoebic dysentery [Recovered/Resolved]
